FAERS Safety Report 12085825 (Version 1)
Quarter: 2016Q1

REPORT INFORMATION
  Report Type: Spontaneous
  Country: US (occurrence: US)
  Receive Date: 20160217
  Receipt Date: 20160217
  Transmission Date: 20160526
  Serious: No
  Sender: FDA-Public Use
  Company Number: US-BAYER-2016-030502

PATIENT
  Age: 22 Year
  Sex: Female

DRUGS (1)
  1. MIRENA [Suspect]
     Active Substance: LEVONORGESTREL
     Dosage: DAILY DOSE 20 MCG/24HR
     Route: 015
     Dates: start: 20150512, end: 201511

REACTIONS (2)
  - Medical device discomfort [None]
  - Medical device pain [None]

NARRATIVE: CASE EVENT DATE: 201511
